FAERS Safety Report 6684513-8 (Version None)
Quarter: 2010Q2

REPORT INFORMATION
  Report Type: 
  Country: None (occurrence: None)
  Receive Date: 20100416
  Receipt Date: 20100412
  Transmission Date: 20101027
  Serious: Yes (Other)
  Sender: FDA-Public Use
  Company Number: FR-BRISTOL-MYERS SQUIBB COMPANY-15059579

PATIENT
  Age: 43 Year
  Sex: Female

DRUGS (6)
  1. ORENCIA [Suspect]
     Indication: RHEUMATOID ARTHRITIS
     Dosage: ABATACEPT 250MG.
     Route: 042
     Dates: start: 20081030, end: 20100303
  2. NABUCOX [Concomitant]
  3. NOVATREX [Concomitant]
  4. SPECIAFOLDINE [Concomitant]
  5. PARIET [Concomitant]
  6. IXPRIM [Concomitant]

REACTIONS (1)
  - ERYTHEMA NODOSUM [None]
